FAERS Safety Report 5094960-6 (Version None)
Quarter: 2006Q3

REPORT INFORMATION
  Report Type: 
  Country: None (occurrence: None)
  Receive Date: 20060901
  Receipt Date: 20060823
  Transmission Date: 20061208
  Serious: Yes (Other)
  Sender: FDA-Public Use
  Company Number: US-JNJFOC-20060805950

PATIENT
  Sex: Female
  Weight: 51.71 kg

DRUGS (5)
  1. FENTANYL TRANSDERMAL SYSTEM [Suspect]
     Indication: SPINAL COLUMN STENOSIS
     Route: 062
  2. PAXIL [Concomitant]
     Route: 048
  3. AMBIEN [Concomitant]
     Route: 048
  4. VALIUM [Concomitant]
     Route: 048
  5. DETROL [Concomitant]
     Route: 048

REACTIONS (2)
  - FALL [None]
  - UPPER LIMB FRACTURE [None]
